FAERS Safety Report 5372371-3 (Version None)
Quarter: 2007Q2

REPORT INFORMATION
  Report Type: 
  Country: None (occurrence: None)
  Receive Date: 20070615
  Receipt Date: 20061018
  Transmission Date: 20071010
  Serious: Yes (Other)
  Sender: FDA-Public Use
  Company Number: 200617189US

PATIENT
  Age: 49 Year
  Sex: Female

DRUGS (2)
  1. LANTUS [Suspect]
     Indication: DIABETES MELLITUS NON-INSULIN-DEPENDENT
     Dosage: 50 U QD SC
     Route: 058
     Dates: start: 20060824
  2. OPTICLIK [Suspect]
     Indication: DIABETES MELLITUS NON-INSULIN-DEPENDENT
     Dates: start: 20060824

REACTIONS (2)
  - HYPERGLYCAEMIA [None]
  - LETHARGY [None]
